FAERS Safety Report 4668373-2 (Version None)
Quarter: 2005Q2

REPORT INFORMATION
  Report Type: 
  Country: None (occurrence: None)
  Receive Date: 20050523
  Receipt Date: 20050512
  Transmission Date: 20051028
  Serious: Yes (Hospitalization, Other)
  Sender: FDA-Public Use
  Company Number: JP-JNJFOC-20050502674

PATIENT
  Sex: Female

DRUGS (9)
  1. REMICADE [Suspect]
     Route: 042
  2. REMICADE [Suspect]
     Route: 042
  3. REMICADE [Suspect]
     Indication: RHEUMATOID ARTHRITIS
     Route: 042
  4. RHEUMATREX [Concomitant]
     Indication: RHEUMATOID ARTHRITIS
     Route: 049
  5. LOXONIN [Concomitant]
     Indication: RHEUMATOID ARTHRITIS
     Dosage: 2T
     Route: 049
  6. LEUCOVORIN CALCIUM [Concomitant]
     Indication: RHEUMATOID ARTHRITIS
     Dosage: 1T
     Route: 049
  7. TAKEPRON [Concomitant]
     Indication: RHEUMATOID ARTHRITIS
     Route: 049
  8. NORVASC [Concomitant]
     Indication: RHEUMATOID ARTHRITIS
     Route: 049
  9. PREDONINE [Concomitant]
     Indication: RHEUMATOID ARTHRITIS
     Route: 049

REACTIONS (1)
  - CERVICAL GLAND TUBERCULOSIS [None]
